FAERS Safety Report 15139679 (Version 1)
Quarter: 2018Q3

REPORT INFORMATION
  Report Type: Spontaneous
  Country: US (occurrence: US)
  Receive Date: 20180713
  Receipt Date: 20180713
  Transmission Date: 20181010
  Serious: Yes (Other)
  Sender: FDA-Public Use
  Company Number: US-EISAI MEDICAL RESEARCH-EC-2018-041236

PATIENT
  Age: 11 Year
  Sex: Male
  Weight: 30.9 kg

DRUGS (19)
  1. FELBAMATE. [Concomitant]
     Active Substance: FELBAMATE
     Indication: LENNOX-GASTAUT SYNDROME
  2. BANZEL [Suspect]
     Active Substance: RUFINAMIDE
     Indication: EPILEPSY
     Route: 048
     Dates: start: 201303, end: 20180524
  3. BANZEL [Interacting]
     Active Substance: RUFINAMIDE
     Route: 048
     Dates: start: 20180601, end: 20180606
  4. DEPAKOTE [Concomitant]
     Active Substance: DIVALPROEX SODIUM
     Indication: LENNOX-GASTAUT SYNDROME
  5. ONFI [Concomitant]
     Active Substance: CLOBAZAM
     Indication: LENNOX-GASTAUT SYNDROME
  6. BANZEL [Interacting]
     Active Substance: RUFINAMIDE
     Indication: LENNOX-GASTAUT SYNDROME
     Dosage: 500 MG IN AM AND 200 MG IN PM
     Route: 048
     Dates: start: 20180525, end: 20180525
  7. MIDAZOLAM [Interacting]
     Active Substance: MIDAZOLAM HYDROCHLORIDE
     Indication: ANAESTHESIA
     Dosage: UNKNOWN
     Route: 042
     Dates: start: 20180523, end: 20180523
  8. AMOXICILLIN. [Concomitant]
     Active Substance: AMOXICILLIN
     Indication: INFECTION PROPHYLAXIS
     Dosage: UNKNOWN
     Route: 065
     Dates: start: 201805
  9. DECADRON [Concomitant]
     Active Substance: DEXAMETHASONE
     Indication: PRODUCT USED FOR UNKNOWN INDICATION
     Dosage: UNKNOWN
     Route: 042
     Dates: start: 20180523, end: 20180523
  10. ANCEF [Concomitant]
     Active Substance: CEFAZOLIN SODIUM
     Indication: PRODUCT USED FOR UNKNOWN INDICATION
     Dosage: UNKNOWN
     Route: 042
     Dates: start: 20180523, end: 20180523
  11. BANZEL [Interacting]
     Active Substance: RUFINAMIDE
     Dosage: 400 MG IN AM AND 300 MG IN PM
     Route: 048
     Dates: start: 20180530, end: 20180530
  12. BANZEL [Interacting]
     Active Substance: RUFINAMIDE
     Dosage: 400 MG IN AM AND 200 MG IN PM
     Route: 048
     Dates: start: 20180531, end: 20180531
  13. FENTANYL. [Interacting]
     Active Substance: FENTANYL
     Indication: ANAESTHESIA
     Dosage: UNKNOWN
     Route: 042
     Dates: start: 20180523, end: 20180523
  14. ONFI [Concomitant]
     Active Substance: CLOBAZAM
     Indication: EPILEPSY
     Dosage: 2.5 MG IN AM AND 15 MG IN PM
     Route: 065
  15. FELBAMATE. [Concomitant]
     Active Substance: FELBAMATE
     Indication: EPILEPSY
     Dosage: 600 MG IN AM AND 800 MG IN PM
     Route: 065
  16. BANZEL [Interacting]
     Active Substance: RUFINAMIDE
     Route: 048
     Dates: start: 20180526, end: 20180529
  17. BANZEL [Interacting]
     Active Substance: RUFINAMIDE
     Route: 048
     Dates: start: 20180607
  18. PROPOFOL. [Interacting]
     Active Substance: PROPOFOL
     Indication: ANAESTHESIA
     Dosage: UNKNOWN
     Route: 042
     Dates: start: 20180523, end: 20180523
  19. DEPAKOTE [Concomitant]
     Active Substance: DIVALPROEX SODIUM
     Indication: EPILEPSY
     Dosage: 62.5 MG IN AM AND 125 MG IN PM
     Route: 065

REACTIONS (3)
  - Anticonvulsant drug level increased [Recovering/Resolving]
  - Drug interaction [Recovering/Resolving]
  - Impaired gastric emptying [Recovering/Resolving]

NARRATIVE: CASE EVENT DATE: 20180523
